FAERS Safety Report 19072873 (Version 2)
Quarter: 2021Q2

REPORT INFORMATION
  Report Type: Spontaneous
  Country: US (occurrence: US)
  Receive Date: 20210330
  Receipt Date: 20210524
  Transmission Date: 20210717
  Serious: No
  Sender: FDA-Public Use
  Company Number: US-TEVA-2021-US-1889185

PATIENT
  Age: 45 Year
  Sex: Female

DRUGS (6)
  1. TIZANIDINE. [Concomitant]
     Active Substance: TIZANIDINE
     Route: 065
  2. CLONAZEPAM. [Concomitant]
     Active Substance: CLONAZEPAM
     Route: 065
  3. PHENERGAN [Concomitant]
     Active Substance: PROMETHAZINE HYDROCHLORIDE
     Indication: NAUSEA
     Route: 065
  4. AJOVY [Suspect]
     Active Substance: FREMANEZUMAB-VFRM
     Dosage: MONTHLY
     Route: 065
     Dates: start: 202009
  5. AJOVY [Suspect]
     Active Substance: FREMANEZUMAB-VFRM
     Indication: MIGRAINE
     Dosage: MONTHLY
     Route: 065
     Dates: start: 2018
  6. TOPAMAX [Concomitant]
     Active Substance: TOPIRAMATE
     Route: 065

REACTIONS (3)
  - Alopecia [Unknown]
  - Liquid product physical issue [Unknown]
  - Product temperature excursion issue [Unknown]
